FAERS Safety Report 17217936 (Version 1)
Quarter: 2019Q4

REPORT INFORMATION
  Report Type: Spontaneous
  Country: GB (occurrence: GB)
  Receive Date: 20191231
  Receipt Date: 20191231
  Transmission Date: 20200122
  Serious: Yes (Death, Other)
  Sender: FDA-Public Use
  Company Number: GB-TEVA-2019-GB-1159505

PATIENT
  Age: 73 Year
  Sex: Male
  Weight: 83 kg

DRUGS (12)
  1. METFORMIN [Concomitant]
     Active Substance: METFORMIN HYDROCHLORIDE
  2. DOXAZOSIN MESYLATE. [Concomitant]
     Active Substance: DOXAZOSIN MESYLATE
  3. RANITIDINE. [Concomitant]
     Active Substance: RANITIDINE
  4. AMIODARONE [Suspect]
     Active Substance: AMIODARONE
     Indication: ATRIAL FIBRILLATION
     Dosage: 200 MG
     Route: 048
     Dates: start: 201806, end: 201902
  5. RIVAROXABAN [Concomitant]
     Active Substance: RIVAROXABAN
  6. EPLERENONE. [Concomitant]
     Active Substance: EPLERENONE
  7. LERCANIDIPINE [Concomitant]
     Active Substance: LERCANIDIPINE
  8. BISOPROLOL [Concomitant]
     Active Substance: BISOPROLOL
  9. RAMIPRIL. [Concomitant]
     Active Substance: RAMIPRIL
  10. FOLIC ACID. [Concomitant]
     Active Substance: FOLIC ACID
  11. ALOGLIPTIN. [Concomitant]
     Active Substance: ALOGLIPTIN
  12. GLYCERYL TRINITRATE [Concomitant]
     Active Substance: NITROGLYCERIN

REACTIONS (3)
  - Pulmonary fibrosis [Fatal]
  - Pneumonia influenzal [Fatal]
  - Pulmonary toxicity [Fatal]

NARRATIVE: CASE EVENT DATE: 201812
